FAERS Safety Report 22626200 (Version 1)
Quarter: 2023Q2

REPORT INFORMATION
  Report Type: Spontaneous
  Country: US (occurrence: None)
  Receive Date: 20230620
  Receipt Date: 20230620
  Transmission Date: 20230721
  Serious: Yes (Other)
  Sender: FDA-Public Use
  Company Number: None

PATIENT
  Age: 54 Year
  Sex: Female

DRUGS (2)
  1. MIDODRINE [Suspect]
     Active Substance: MIDODRINE
     Indication: Postural orthostatic tachycardia syndrome
     Dosage: FREQUENCY : AS NEEDED;?
     Route: 048
     Dates: start: 20230522, end: 20230619
  2. MIDODRINE [Suspect]
     Active Substance: MIDODRINE
     Indication: Orthostatic hypotension

REACTIONS (4)
  - Nightmare [None]
  - Tremor [None]
  - Fear [None]
  - Abnormal dreams [None]
